FAERS Safety Report 25790099 (Version 2)
Quarter: 2025Q4

REPORT INFORMATION
  Report Type: Report from Study
  Country: US (occurrence: US)
  Receive Date: 20250911
  Receipt Date: 20251230
  Transmission Date: 20260118
  Serious: Yes (Other)
  Sender: JAZZ
  Company Number: US-JAZZ PHARMACEUTICALS-2025-US-021280

PATIENT
  Age: 38 Year
  Sex: Female
  Weight: 84 kg

DRUGS (45)
  1. XYWAV [Suspect]
     Active Substance: CALCIUM OXYBATE\MAGNESIUM OXYBATE\POTASSIUM OXYBATE\SODIUM OXYBATE
     Indication: Narcolepsy
     Dosage: UNK
  2. XYWAV [Suspect]
     Active Substance: CALCIUM OXYBATE\MAGNESIUM OXYBATE\POTASSIUM OXYBATE\SODIUM OXYBATE
     Indication: Cataplexy
     Dosage: 4.5 GRAM, BID
  3. XYWAV [Suspect]
     Active Substance: CALCIUM OXYBATE\MAGNESIUM OXYBATE\POTASSIUM OXYBATE\SODIUM OXYBATE
     Indication: Somnolence
  4. ALBUTEROL SULFATE [Concomitant]
     Active Substance: ALBUTEROL SULFATE
     Indication: Wheezing
     Dosage: INHALE 2 PUFFS BY MOUTH EVERY 6 HOURS AS NEEDED
  5. ALBUTEROL SULFATE [Concomitant]
     Active Substance: ALBUTEROL SULFATE
     Indication: Dyspnoea
  6. ALPRAZOLAM [Concomitant]
     Active Substance: ALPRAZOLAM
     Indication: Product used for unknown indication
     Dosage: TAKE 1/2 TABLET BY MOUTH IN THE EVENING AS NEEDED
  7. AMOXICILLIN\CLAVULANATE POTASSIUM [Concomitant]
     Active Substance: AMOXICILLIN\CLAVULANATE POTASSIUM
     Indication: Product used for unknown indication
     Dosage: TAKE 1 TABLET BY MOUTH EVERY 12 HOURS FOR 10 DAYS
  8. ATROPINE [Concomitant]
     Active Substance: ATROPINE
     Indication: Product used for unknown indication
     Dosage: INSTILL 1 DROP INTO RIGHT EYE TWCE DAILY
  9. AZELASTINE [Concomitant]
     Active Substance: AZELASTINE
     Indication: Product used for unknown indication
     Dosage: USE 2 SPRAYS IN EACH NOSTRIL DAILY
  10. AZITHROMYCIN [Concomitant]
     Active Substance: AZITHROMYCIN
     Indication: Product used for unknown indication
     Dosage: TAKE 2 TABLETS BY MOUTH FOR 1 DAY THEN TAKE 1 TABLET BY MOUTH DAILY FOR 4 DAYS
  11. BACITRACIN [Concomitant]
     Active Substance: BACITRACIN
     Indication: Product used for unknown indication
     Dosage: APPLY TOPICALLY TO THE AFFECTED AREA THREE TIMES DAILY AS NEEDED
  12. BACLOFEN [Concomitant]
     Active Substance: BACLOFEN
     Indication: Product used for unknown indication
     Dosage: TAKE 1 TABLET BY MOUTH 1 TO 2 TIMES A DAY AS NEEDED
  13. BENZONATATE [Concomitant]
     Active Substance: BENZONATATE
     Indication: Product used for unknown indication
     Dosage: TAKE 1 CAPSULE BY MOUTH THREE TIMES DAILY
  14. BUTALBITAL, ACETAMINOPHEN, AND CAFFEINE [Concomitant]
     Active Substance: ACETAMINOPHEN\BUTALBITAL\CAFFEINE
     Indication: Headache
     Dosage: TAKE 1 CAPSULE BY MOUTH EVERY 6 HOURS AS NEEDED
  15. BUTALBITAL, ACETAMINOPHEN, AND CAFFEINE [Concomitant]
     Active Substance: ACETAMINOPHEN\BUTALBITAL\CAFFEINE
     Indication: Headache
     Dosage: TAKE 1 TABLET BY MOUTH EVERY 4 HOURS AS NEEDED FOR UP TO 10 DAYS
  16. CEPHALEXIN MONOHYDRATE [Concomitant]
     Active Substance: CEPHALEXIN MONOHYDRATE
     Indication: Product used for unknown indication
     Dosage: TAKE 1 CAPSULE BY MOUTH EVERY 12 HOURS FOR 7 DAYS
  17. CIPROFLOXACIN [Concomitant]
     Active Substance: CIPROFLOXACIN
     Indication: Product used for unknown indication
     Dosage: IN^STILL ONE DROP INTO AFFECTED EYE EVERY 2 HOURS WHILE AWAKE FOR 2 DAYS THEN 1 DROP EVERY 4 HOURS WHILE AWAKE FOR 5 DAYS
  18. CIPROFLOXACIN [Concomitant]
     Active Substance: CIPROFLOXACIN
     Dosage: 250 MILLIGRAM, TAKE 1 TABLET BY MOUTH EVERY 12 HOURS FOR 10 DAYS
  19. CLONAZEPAM [Concomitant]
     Active Substance: CLONAZEPAM
     Indication: Product used for unknown indication
     Dosage: TAKE 1 TABLET BY MOUTH EVERY DAY AS NEEDED
  20. DICYCLOMINE HYDROCHLORIDE [Concomitant]
     Active Substance: DICYCLOMINE HYDROCHLORIDE
     Indication: Abdominal pain
     Dosage: TAKE 1 CAPSULE BY MOUTH THREE TIMES DAILY AS NEEDED
  21. DICYCLOMINE HYDROCHLORIDE [Concomitant]
     Active Substance: DICYCLOMINE HYDROCHLORIDE
     Dosage: 20 MILLIGRAM, TAKE 1 TABLET BY MOUTH FOUR TIMES DAILY AS NEEDED
  22. VITAMIN D2 [Concomitant]
     Active Substance: ERGOCALCIFEROL
     Indication: Product used for unknown indication
     Dosage: TAKE 1 CAPSULE BY MOUTH EVERY WEEK
  23. FAMOTIDINE [Concomitant]
     Active Substance: FAMOTIDINE
     Indication: Product used for unknown indication
     Dosage: TAKE 1 TABLET BY MOUTH DAILY
  24. GABAPENTIN [Concomitant]
     Active Substance: GABAPENTIN
     Indication: Pain
     Dosage: TAKE 1 CAPSULE BY MOUTH THREE TIMES DAILY AS NEEDED
  25. HAILEY 1.5/30 [Concomitant]
     Active Substance: ETHINYL ESTRADIOL\NORETHINDRONE ACETATE
     Indication: Product used for unknown indication
     Dosage: TAKE ONE TABLET BY MOUTH DAILY CONTINUSOUSLY
  26. IBUPROFEN [Concomitant]
     Active Substance: IBUPROFEN
     Indication: Product used for unknown indication
     Dosage: TAKE 1 TABLET BY MOUTH TWICE DAILY AS NEEDED
  27. IPRATROPIUM BROMIDE [Concomitant]
     Active Substance: IPRATROPIUM BROMIDE
     Indication: Product used for unknown indication
     Dosage: USE 2 SPRAYS IN EACH NOSTRIL TWICE DAILY
  28. KETOCONAZOLE [Concomitant]
     Active Substance: KETOCONAZOLE
     Indication: Product used for unknown indication
     Dosage: APPLY TOPICALLY TO THE AFFECTED AREA EVERY DAY
  29. MECLIZINE [Concomitant]
     Active Substance: MECLIZINE HYDROCHLORIDE
     Indication: Product used for unknown indication
     Dosage: TAKE 1 TABLET BY MOUTH THREE TIMES DAILY AS NEEDED
  30. MECLIZINE [Concomitant]
     Active Substance: MECLIZINE HYDROCHLORIDE
     Dosage: 25 MILLIGRAM, TAKE 1 TABLET BY MOUTH THREE TIMES DAILY AS NEEDED
  31. MECLIZINE [Concomitant]
     Active Substance: MECLIZINE HYDROCHLORIDE
     Dosage: 15 MILLIGRAM, TAKE 1 TABLET BY MOUTH EVERY DAY
  32. METHOCARBAMOL [Concomitant]
     Active Substance: METHOCARBAMOL
     Indication: Product used for unknown indication
     Dosage: TAKE 1 TABLET BY MOUTH FOUR TIMES DAILY FOR 10 DAYS
  33. METHYLPREDNISOLONE [Concomitant]
     Active Substance: METHYLPREDNISOLONE
     Indication: Product used for unknown indication
     Dosage: FOLLOW PACKAGE DIRECTIONS
  34. METOPROLOL SUCCINATE [Concomitant]
     Active Substance: METOPROLOL SUCCINATE
     Indication: Product used for unknown indication
     Dosage: TAKE 1 TABLET BY MOUTH EVERY DAY
  35. NAPROXEN [Concomitant]
     Active Substance: NAPROXEN
     Indication: Product used for unknown indication
     Dosage: TAKE 1 TABLET BY MOUTH TWICE DAILY
  36. NEOMYCIN AND POLYMYXIN B SULFATES AND HYDROCORTISONE [Concomitant]
     Active Substance: HYDROCORTISONE\NEOMYCIN SULFATE\POLYMYXIN B SULFATE
     Indication: Product used for unknown indication
     Dosage: SHAKE LIQUID AND INSTILL 4 DROPS TO AFFECTED EAR THREE TIMES DAILY
  37. NITROFURANTOIN MONOHYDRATE MACROCRYSTALS [Concomitant]
     Active Substance: NITROFURANTOIN\NITROFURANTOIN MONOHYDRATE
     Indication: Product used for unknown indication
     Dosage: TAKE 1 CAPSULE BY MOUTH EVERY 12 HOURS FOR 10 DAYS
  38. OMEPRAZOLE [Concomitant]
     Active Substance: OMEPRAZOLE
     Indication: Product used for unknown indication
     Dosage: TAKE 1 CAPSULE BY MOUTH TWICE DAILY 30 MINUTES BEFORE THE MORNING AND EVENING MEAL
  39. ONDANSETRON [Concomitant]
     Active Substance: ONDANSETRON
     Indication: Nausea
     Dosage: TAKE 1 TABLET BY MOUTH EVERY 8 HOURS AS NEEDED FOR NAUSEA AND VOMITING. ALLOW TABLET TO DISSOLVE ON TONGUE
  40. ONDANSETRON [Concomitant]
     Active Substance: ONDANSETRON
     Indication: Vomiting
  41. PHENTERMINE [Concomitant]
     Active Substance: PHENTERMINE
     Indication: Product used for unknown indication
     Dosage: TAKE 1 TABLET BY MOUTH EVERY DA
  42. PREDNISOLONE ACETATE [PREDNISONE ACETATE] [Concomitant]
     Indication: Product used for unknown indication
     Dosage: SHAKE LIQUID AND INSTILL 1 DROP IN RIGHT EY? FOUR TIMES DAILY
  43. TOPIRAMATE [Concomitant]
     Active Substance: TOPIRAMATE
     Indication: Product used for unknown indication
     Dosage: TAKE 1 TABLET BY MOUTH EVERY DAY AT BEDTIME
  44. COVID-19 VACCINE [Concomitant]
     Indication: Product used for unknown indication
  45. INFLUENZA VIRUS VACCINE [Concomitant]
     Active Substance: INFLUENZA VIRUS VACCINE
     Indication: Product used for unknown indication

REACTIONS (3)
  - Surgery [Unknown]
  - Pharyngeal inflammation [Unknown]
  - Drug tolerance increased [Unknown]

NARRATIVE: CASE EVENT DATE: 20250101
